FAERS Safety Report 8971257 (Version 2)
Quarter: 2012Q4

REPORT INFORMATION
  Report Type: 
  Country: JP (occurrence: JP)
  Receive Date: 20121217
  Receipt Date: 20121227
  Transmission Date: 20130627
  Serious: Yes (Hospitalization)
  Sender: FDA-Public Use
  Company Number: JP-GLAXOSMITHKLINE-B0852504A

PATIENT
  Age: 76 Year
  Sex: Female

DRUGS (4)
  1. VALTREX [Suspect]
     Indication: VIITH NERVE PARALYSIS
     Dosage: 1000MG Three times per day
     Route: 048
     Dates: start: 20121208, end: 20121209
  2. GASTER [Concomitant]
     Dosage: 20MG Twice per day
     Route: 048
     Dates: start: 20121208, end: 20121209
  3. PREDONINE [Concomitant]
     Dosage: 60MG Per day
     Route: 048
     Dates: start: 20121208
  4. PREDONINE [Concomitant]
     Route: 048

REACTIONS (4)
  - Dizziness [Recovered/Resolved]
  - Nausea [Recovered/Resolved]
  - Malaise [Unknown]
  - Overdose [Unknown]
